FAERS Safety Report 7220202-9 (Version None)
Quarter: 2011Q1

REPORT INFORMATION
  Report Type: 
  Country: None (occurrence: None)
  Receive Date: 20110111
  Receipt Date: 20110106
  Transmission Date: 20110831
  Serious: Yes (Death, Hospitalization, Other)
  Sender: FDA-Public Use
  Company Number: US-AMGEN-US338947

PATIENT

DRUGS (2)
  1. NPLATE [Suspect]
     Indication: IDIOPATHIC THROMBOCYTOPENIC PURPURA
     Dosage: 525 A?G, UNK
     Route: 065
     Dates: start: 20081216, end: 20090303
  2. NPLATE [Suspect]
     Dates: start: 20081216, end: 20090303

REACTIONS (4)
  - DEATH [None]
  - DYSURIA [None]
  - ACUTE MYELOID LEUKAEMIA [None]
  - THERAPEUTIC RESPONSE DECREASED [None]
